FAERS Safety Report 7148291-0 (Version None)
Quarter: 2010Q4

REPORT INFORMATION
  Report Type: 
  Country: None (occurrence: None)
  Receive Date: 20101124
  Receipt Date: 20101110
  Transmission Date: 20110411
  Serious: Yes (Other)
  Sender: FDA-Public Use
  Company Number: 1000010858

PATIENT
  Age: 68 Year
  Sex: Female

DRUGS (2)
  1. ESCITALOPRAM [Suspect]
     Indication: BIPOLAR DISORDER
     Dosage: 1 DF (1 DOSAGE FORMS, 1 IN 1 D)
     Dates: start: 20040101
  2. RISPERIDON (RISPERIDONE) (TABLETS) (RISPERIDONE) [Concomitant]

REACTIONS (2)
  - MYELOFIBROSIS [None]
  - THROMBOCYTOPENIA [None]
